FAERS Safety Report 8173836-1 (Version None)
Quarter: 2012Q1

REPORT INFORMATION
  Report Type: 
  Country: None (occurrence: None)
  Receive Date: 20120229
  Receipt Date: 20120215
  Transmission Date: 20120608
  Serious: Yes (Death)
  Sender: FDA-Public Use
  Company Number: US-ELI_LILLY_AND_COMPANY-US201201001042

PATIENT
  Sex: Male

DRUGS (6)
  1. LISINOPRIL AND HYDROCHLOROTHIAZIDE [Concomitant]
  2. FLUOXETINE [Concomitant]
  3. ARICEPT [Concomitant]
  4. VICODIN [Concomitant]
  5. ZYPREXA [Suspect]
     Dosage: 2.5 MG, QD
     Route: 048
     Dates: start: 20091001
  6. OMEPRAZOLE [Concomitant]

REACTIONS (1)
  - DEMENTIA [None]
